FAERS Safety Report 10072016 (Version 1)
Quarter: 2014Q2

REPORT INFORMATION
  Report Type: Spontaneous
  Country: BR (occurrence: BR)
  Receive Date: 20140411
  Receipt Date: 20140411
  Transmission Date: 20141212
  Serious: Yes (Hospitalization)
  Sender: FDA-Public Use
  Company Number: BR-BAYER-2014-050391

PATIENT
  Age: 40 Year
  Sex: Female
  Weight: 83 kg

DRUGS (7)
  1. PROMIRA [Suspect]
     Indication: PNEUMONIA
     Dosage: 1 DF, QD
     Route: 048
     Dates: start: 20140315, end: 20140319
  2. DRAMIN [Concomitant]
     Indication: LABYRINTHITIS
     Dosage: 1 DF, TID
     Route: 048
     Dates: start: 2009
  3. ESCITALOPRAM [Concomitant]
     Indication: ANXIETY
     Dosage: 1 DF, QD
     Route: 048
     Dates: start: 2012
  4. RIVOTRIL [Concomitant]
     Indication: ANXIETY
     Dosage: 0.5 DF, PRN
     Route: 048
     Dates: start: 2012
  5. LEXAPRO [Concomitant]
     Indication: PANIC REACTION
     Dosage: 10 MG, QD
     Route: 048
     Dates: start: 2012
  6. RIVOTRIL [Concomitant]
     Indication: PANIC REACTION
     Dosage: 0.25 MG, PRN
     Route: 048
     Dates: start: 2012
  7. CERAZETTE [Concomitant]
     Indication: CONTRACEPTION
     Dosage: 1 DF, QD
     Route: 048
     Dates: start: 2005

REACTIONS (2)
  - Lung infection [Recovered/Resolved]
  - Drug ineffective [None]
